FAERS Safety Report 19206285 (Version 2)
Quarter: 2021Q2

REPORT INFORMATION
  Report Type: Spontaneous
  Country: US (occurrence: US)
  Receive Date: 20210503
  Receipt Date: 20210617
  Transmission Date: 20210717
  Serious: No
  Sender: FDA-Public Use
  Company Number: US-ASTRAZENECA-2021A303248

PATIENT
  Age: 22926 Day
  Sex: Male

DRUGS (4)
  1. BREZTRI AEROSPHERE [Suspect]
     Active Substance: BUDESONIDE\FORMOTEROL\GLYCOPYRRONIUM
     Indication: CHRONIC OBSTRUCTIVE PULMONARY DISEASE
     Dosage: 160?9?4.8 MCG, 2 PUFFS, TWICE A DAY
     Route: 055
     Dates: start: 202103
  2. BREZTRI AEROSPHERE [Suspect]
     Active Substance: BUDESONIDE\FORMOTEROL\GLYCOPYRRONIUM
     Indication: EMPHYSEMA
     Dosage: 160?9?4.8 MCG, 2 PUFFS, TWICE A DAY
     Route: 055
     Dates: start: 202103
  3. BREZTRI AEROSPHERE [Suspect]
     Active Substance: BUDESONIDE\FORMOTEROL\GLYCOPYRRONIUM
     Indication: LUNG DISORDER
     Dosage: 160?9?4.8 MCG, 2 PUFFS, TWICE A DAY
     Route: 055
     Dates: start: 202103
  4. BREZTRI AEROSPHERE [Suspect]
     Active Substance: BUDESONIDE\FORMOTEROL\GLYCOPYRRONIUM
     Indication: ASTHMA
     Dosage: 160?9?4.8 MCG, 2 PUFFS, TWICE A DAY
     Route: 055
     Dates: start: 202103

REACTIONS (5)
  - Device use issue [Unknown]
  - Drug delivery system issue [Unknown]
  - Dyspnoea [Unknown]
  - Wrong technique in device usage process [Unknown]
  - Product dose omission issue [Unknown]
